FAERS Safety Report 16046856 (Version 1)
Quarter: 2019Q2

REPORT INFORMATION
  Report Type: Spontaneous
  Country: US (occurrence: US)
  Receive Date: 20190307
  Receipt Date: 20190307
  Transmission Date: 20190711
  Serious: Yes (Other)
  Sender: FDA-Public Use
  Company Number: None

PATIENT
  Age: 68 Year
  Sex: Female
  Weight: 101.7 kg

DRUGS (7)
  1. CARBOPLATIN. [Concomitant]
     Active Substance: CARBOPLATIN
     Dates: start: 20190118
  2. PACLITAXEL. [Concomitant]
     Active Substance: PACLITAXEL
     Dates: start: 20190125, end: 20190125
  3. DEXAMETHASONE. [Concomitant]
     Active Substance: DEXAMETHASONE
     Dates: start: 20190118
  4. DOCETAXEL. [Concomitant]
     Active Substance: DOCETAXEL
     Dates: start: 20190215
  5. EMEND (FOSAPREPITANT DIMEGLUMINE) [Suspect]
     Active Substance: FOSAPREPITANT DIMEGLUMINE
     Indication: PREMEDICATION
     Dosage: ?          OTHER FREQUENCY:ONCE;?
     Route: 042
     Dates: start: 20190118, end: 20190118
  6. PALONOSETRON. [Concomitant]
     Active Substance: PALONOSETRON HYDROCHLORIDE
     Dates: start: 20190118
  7. 0.9% SODIUM CHLORIDE (DILUENT) [Concomitant]
     Dates: start: 20190118, end: 20190118

REACTIONS (10)
  - Dyspnoea [None]
  - Chest pain [None]
  - Chest discomfort [None]
  - Erythema [None]
  - Infusion related reaction [None]
  - Eye movement disorder [None]
  - Unresponsive to stimuli [None]
  - Incontinence [None]
  - Hypoxia [None]
  - Posturing [None]

NARRATIVE: CASE EVENT DATE: 20190118
